FAERS Safety Report 12193599 (Version 2)
Quarter: 2016Q2

REPORT INFORMATION
  Report Type: Report from Study
  Country: US (occurrence: US)
  Receive Date: 20160320
  Receipt Date: 20160524
  Transmission Date: 20160815
  Serious: Yes (Hospitalization, Other)
  Sender: FDA-Public Use
  Company Number: US-AMGEN-USASL2016034180

PATIENT
  Age: 59 Year
  Sex: Male

DRUGS (4)
  1. DEXAMETHASONE. [Concomitant]
     Active Substance: DEXAMETHASONE
     Dosage: 10 MG, UNK
     Route: 042
  2. THALIDOMIDE [Concomitant]
     Active Substance: THALIDOMIDE
     Dosage: UNK
  3. KYPROLIS [Suspect]
     Active Substance: CARFILZOMIB
     Indication: PLASMA CELL MYELOMA
     Dosage: UNK
     Route: 065
     Dates: start: 201512
  4. KYPROLIS [Suspect]
     Active Substance: CARFILZOMIB
     Dosage: UNK
     Route: 065

REACTIONS (4)
  - Drug ineffective [Unknown]
  - Loss of consciousness [Unknown]
  - Influenza [Unknown]
  - Parvovirus infection [Unknown]
